FAERS Safety Report 5772201-1 (Version None)
Quarter: 2008Q2

REPORT INFORMATION
  Report Type: 
  Country: None (occurrence: None)
  Receive Date: 20080613
  Receipt Date: 20080603
  Transmission Date: 20081010
  Serious: Yes (Hospitalization)
  Sender: FDA-Public Use
  Company Number: PT-JNJFOC-20080602275

PATIENT
  Sex: Female

DRUGS (4)
  1. ZALDIAR [Suspect]
     Indication: BACK PAIN
     Route: 048
  2. TROSPIUM CHLORIDE [Suspect]
     Indication: URINARY INCONTINENCE
     Route: 048
  3. ANTIHISTAMINES [Concomitant]
     Indication: DRUG USE FOR UNKNOWN INDICATION
     Route: 065
  4. ENALAPRIL MALEATE [Concomitant]
     Indication: DRUG USE FOR UNKNOWN INDICATION
     Route: 065

REACTIONS (3)
  - APHASIA [None]
  - PARESIS [None]
  - TONIC CONVULSION [None]
